FAERS Safety Report 9012542 (Version 1)
Quarter: 2013Q1

REPORT INFORMATION
  Report Type: Spontaneous
  Country: US (occurrence: US)
  Receive Date: 20130114
  Receipt Date: 20130114
  Transmission Date: 20140127
  Serious: Yes (Death)
  Sender: FDA-Public Use
  Company Number: US-009507513-1301USA004140

PATIENT
  Age: 55 Year
  Sex: Female

DRUGS (13)
  1. MONTELUKAST SODIUM [Suspect]
     Dosage: UNK DF, UNK
     Route: 048
  2. PRAVASTATIN [Suspect]
     Indication: PRODUCT USED FOR UNKNOWN INDICATION
     Dosage: UNK DF, UNK
     Route: 048
  3. NAPROXEN [Suspect]
     Dosage: UNK DF, UNK
     Route: 048
  4. LISINOPRIL [Suspect]
     Dosage: UNK DF, UNK
     Route: 048
  5. EZETIMIBE (+) SIMVASTATIN [Suspect]
     Dosage: UNK DF, ORAL
     Route: 048
  6. CIMETIDINE [Suspect]
     Dosage: UNK, DF, ORAL
     Route: 048
  7. GABAPENTIN [Suspect]
     Dosage: UNK DF, UNK
     Route: 048
  8. HYDROCODONE BITARTRATE [Suspect]
     Dosage: UNK DF, UNK
     Route: 048
  9. OXYCODONE HYDROCHLORIDE [Suspect]
     Dosage: UNK DF, UNK
     Route: 048
  10. CYCLOBENZAPRINE HYDROCHLORIDE [Suspect]
     Dosage: UNK DF, UNK
     Route: 048
  11. COCAINE [Suspect]
     Dosage: UNK DF, UNK
     Route: 048
  12. MORPHINE [Suspect]
     Dosage: UNK DF, UNK
     Route: 048
  13. ALPRAZOLAM [Suspect]
     Dosage: UNK DF, UNK
     Route: 048

REACTIONS (1)
  - Poisoning [Fatal]
